FAERS Safety Report 10166724 (Version 1)
Quarter: 2014Q2

REPORT INFORMATION
  Report Type: Spontaneous
  Country: US (occurrence: None)
  Receive Date: 20140509
  Receipt Date: 20140509
  Transmission Date: 20141212
  Serious: Yes (Hospitalization)
  Sender: FDA-Public Use
  Company Number: None

PATIENT
  Age: 14 Year
  Sex: Male
  Weight: 73.6 kg

DRUGS (3)
  1. MERCAPTOPURINE [Suspect]
     Dates: end: 20140501
  2. METHOTREXATE [Suspect]
     Dates: end: 20140501
  3. VINCRISTINE SULFATE [Suspect]
     Dates: end: 20140501

REACTIONS (4)
  - Hordeolum [None]
  - Conjunctivitis [None]
  - Staphylococcus test positive [None]
  - Cellulitis [None]
